FAERS Safety Report 20206464 (Version 4)
Quarter: 2022Q1

REPORT INFORMATION
  Report Type: Report from Study
  Country: EG (occurrence: EG)
  Receive Date: 20211220
  Receipt Date: 20220329
  Transmission Date: 20220423
  Serious: Yes (Death, Hospitalization, Other)
  Sender: FDA-Public Use
  Company Number: EG-NOVARTISPH-NVSC2021EG291455

PATIENT
  Age: 58 Year
  Sex: Male

DRUGS (3)
  1. ENTRESTO [Suspect]
     Active Substance: SACUBITRIL\VALSARTAN
     Indication: Cardiac failure
     Dosage: 50 MG, BID
     Route: 048
     Dates: start: 20191001, end: 20201001
  2. ENTRESTO [Suspect]
     Active Substance: SACUBITRIL\VALSARTAN
     Dosage: 100 MG, HALF TABLET
     Route: 065
     Dates: start: 20210215, end: 20210301
  3. ENTRESTO [Suspect]
     Active Substance: SACUBITRIL\VALSARTAN
     Dosage: 100 MG, BID
     Route: 065

REACTIONS (11)
  - Death [Fatal]
  - Coma [Recovered/Resolved]
  - Cardiac arrest [Recovered/Resolved]
  - Ejection fraction decreased [Recovered/Resolved]
  - Asthma [Recovered/Resolved]
  - Pulmonary congestion [Recovered/Resolved]
  - Angina pectoris [Unknown]
  - Wrong technique in product usage process [Unknown]
  - Pyrexia [Recovered/Resolved]
  - Abdominal pain upper [Not Recovered/Not Resolved]
  - Abdominal distension [Not Recovered/Not Resolved]

NARRATIVE: CASE EVENT DATE: 20201102
